FAERS Safety Report 24250359 (Version 1)
Quarter: 2024Q3

REPORT INFORMATION
  Report Type: Spontaneous
  Country: ES (occurrence: ES)
  Receive Date: 20240826
  Receipt Date: 20240826
  Transmission Date: 20241017
  Serious: Yes (Other)
  Sender: TEVA
  Company Number: None

PATIENT
  Age: 81 Year
  Sex: Male

DRUGS (10)
  1. DONEPEZIL [Suspect]
     Active Substance: DONEPEZIL\DONEPEZIL HYDROCHLORIDE
     Indication: Dementia Alzheimer^s type
     Dosage: 10.0 MG Q/24 H NOC
     Route: 048
     Dates: start: 20240702, end: 20240803
  2. BISOPROLOL FUMARATE [Concomitant]
     Active Substance: BISOPROLOL FUMARATE
     Indication: Essential hypertension
     Dosage: 1.25 MG DE ; EFG, 28 TABLETS
     Route: 048
     Dates: start: 20220728
  3. ENALAPRIL [Concomitant]
     Active Substance: ENALAPRIL
     Indication: Essential hypertension
     Dosage: 10.0 MG CE ;  56 TABLETS
     Route: 048
     Dates: start: 20230928
  4. OMEPRAZOLE [Concomitant]
     Active Substance: OMEPRAZOLE
     Indication: Cholelithiasis
     Dosage: 20.0 MG C/24 H ;  OMEPRAZOLE TEVA- RATIO , EFG, 56 CAPSULES
     Route: 048
     Dates: start: 20080710
  5. KETOCONAZOLE [Concomitant]
     Active Substance: KETOCONAZOLE
     Indication: Actinic keratosis
     Dosage: 1.0 APPLICATION C/24 H; EFG, 1 BOTTLE OF 100 ML
     Route: 061
     Dates: start: 20110518
  6. DUTASTERIDE\TAMSULOSIN [Concomitant]
     Active Substance: DUTASTERIDE\TAMSULOSIN
     Indication: Benign prostatic hyperplasia
     Dosage: 1.0 CAPS D-DE; 0.5 MG/0.4 MG , 30 CAPSULES
     Route: 048
     Dates: start: 20141004
  7. GINKGO [Concomitant]
     Active Substance: GINKGO
     Indication: Spinal meningioma benign
     Dosage: 240.0 MG DE ;   30 TABLETS
     Route: 048
     Dates: start: 20230624
  8. TORASEMIDE NORMON [Concomitant]
     Indication: Essential hypertension
     Dosage: 5.0 MG DE; EFG , 30 TABLETS
     Route: 048
     Dates: start: 20230929
  9. LORAZEPAM [Concomitant]
     Active Substance: LORAZEPAM
     Indication: Product used for unknown indication
     Dosage: 0.5 MG C/24 H NOC ;  50 TABLETS
     Route: 048
     Dates: start: 20080709
  10. CARBIDOPA\LEVODOPA [Concomitant]
     Active Substance: CARBIDOPA\LEVODOPA
     Indication: Parkinson^s disease
     Dosage: 1.0 COMP DECOCE ;  25 MG/100 MG , 100 TABLETS
     Route: 048
     Dates: start: 20230901

REACTIONS (5)
  - Decreased appetite [Recovering/Resolving]
  - Syncope [Recovering/Resolving]
  - Vomiting [Recovering/Resolving]
  - Dizziness [Recovering/Resolving]
  - Disorientation [Recovering/Resolving]

NARRATIVE: CASE EVENT DATE: 20240702
